FAERS Safety Report 7621078-8 (Version None)
Quarter: 2011Q3

REPORT INFORMATION
  Report Type: 
  Country: None (occurrence: None)
  Receive Date: 20110719
  Receipt Date: 20110308
  Transmission Date: 20111222
  Serious: No
  Sender: FDA-Public Use
  Company Number: US-KINGPHARMUSA00001-K201100239

PATIENT
  Age: 41 Year
  Sex: Female
  Weight: 70.295 kg

DRUGS (3)
  1. LEVOXYL [Suspect]
     Indication: HYPOTHYROIDISM
     Dosage: 175 MCG, QD
     Route: 048
     Dates: start: 20100101
  2. T4 [Concomitant]
     Indication: HYPOTHYROIDISM
     Dosage: UNK
  3. LEVOXYL [Suspect]
     Dosage: 150 MCG, QD
     Route: 048
     Dates: start: 20080101, end: 20100101

REACTIONS (6)
  - SWELLING [None]
  - FATIGUE [None]
  - HAIR TEXTURE ABNORMAL [None]
  - DRUG INEFFECTIVE [None]
  - WEIGHT INCREASED [None]
  - OEDEMA PERIPHERAL [None]
